FAERS Safety Report 14894493 (Version 1)
Quarter: 2018Q2

REPORT INFORMATION
  Report Type: Report from Study
  Country: ES (occurrence: ES)
  Receive Date: 20180515
  Receipt Date: 20180515
  Transmission Date: 20180711
  Serious: Yes (Life-Threatening, Hospitalization)
  Sender: FDA-Public Use
  Company Number: ES-TEVA-2018-ES-892222

PATIENT
  Age: 72 Year
  Sex: Male

DRUGS (4)
  1. CRESTOR [Concomitant]
     Active Substance: ROSUVASTATIN CALCIUM
  2. OLMETEC [Concomitant]
     Active Substance: OLMESARTAN MEDOXOMIL
  3. LANSOPRAZOL (2598A) [Suspect]
     Active Substance: LANSOPRAZOLE
     Route: 048
     Dates: start: 20160515, end: 20160515
  4. RANITIDINA (2A) [Concomitant]
     Active Substance: RANITIDINE

REACTIONS (1)
  - Anaphylactic shock [Recovered/Resolved]

NARRATIVE: CASE EVENT DATE: 20160515
